FAERS Safety Report 4568091-5 (Version None)
Quarter: 2005Q1

REPORT INFORMATION
  Report Type: 
  Country: None (occurrence: None)
  Receive Date: 20050128
  Receipt Date: 20050114
  Transmission Date: 20050727
  Serious: Yes (Hospitalization)
  Sender: FDA-Public Use
  Company Number: 2005UW00764

PATIENT
  Age: 62 Year
  Sex: Male
  Weight: 96.615 kg

DRUGS (4)
  1. CRESTOR [Suspect]
     Indication: DYSLIPIDAEMIA
     Dosage: 40 MG PO
     Route: 048
  2. INDOMETHACIN [Concomitant]
  3. PROCARDIA XL [Concomitant]
  4. ACETYLSALICYLIC ACID [Concomitant]

REACTIONS (3)
  - CONVULSION [None]
  - DIALYSIS [None]
  - RENAL FAILURE [None]
